FAERS Safety Report 6006312-2 (Version None)
Quarter: 2008Q4

REPORT INFORMATION
  Report Type: 
  Country: None (occurrence: None)
  Receive Date: 20081217
  Receipt Date: 20081210
  Transmission Date: 20090506
  Serious: Yes (Congenital Anomaly)
  Sender: FDA-Public Use
  Company Number: A0679816A

PATIENT
  Sex: Male

DRUGS (9)
  1. PAXIL [Suspect]
     Indication: DEPRESSION
     Dosage: 20MG PER DAY
     Dates: start: 20000101, end: 20010401
  2. VITAMIN TAB [Concomitant]
  3. CHROMAGEN [Concomitant]
     Dates: start: 20010101, end: 20010201
  4. PERI-COLACE [Concomitant]
     Dates: start: 20010101, end: 20010201
  5. HEPARIN [Concomitant]
     Dates: start: 20010101, end: 20010201
  6. PEPCID [Concomitant]
     Dates: start: 20010101, end: 20010201
  7. AMBIEN [Concomitant]
     Dates: start: 20010101, end: 20010201
  8. MAALOX [Concomitant]
     Dates: start: 20010101, end: 20010201
  9. TYLENOL (CAPLET) [Concomitant]
     Dates: start: 20010101, end: 20010201

REACTIONS (8)
  - DRUG EXPOSURE DURING PREGNANCY [None]
  - HEAD DEFORMITY [None]
  - MULTIPLE CONGENITAL ABNORMALITIES [None]
  - PNEUMONIA [None]
  - PULMONARY MALFORMATION [None]
  - RESPIRATORY DISORDER [None]
  - SPEECH DISORDER [None]
  - WITHDRAWAL SYNDROME [None]
